FAERS Safety Report 4876015-6 (Version None)
Quarter: 2006Q1

REPORT INFORMATION
  Report Type: 
  Country: None (occurrence: None)
  Receive Date: 20060109
  Receipt Date: 20060104
  Transmission Date: 20060701
  Serious: Yes (Hospitalization)
  Sender: FDA-Public Use
  Company Number: FR-SANOFI-SYNTHELABO-F01200600017

PATIENT
  Sex: Male
  Weight: 75 kg

DRUGS (7)
  1. OXALIPLATIN [Suspect]
     Indication: OESOPHAGEAL CARCINOMA
     Route: 042
     Dates: start: 20051128, end: 20051128
  2. FLUOROURACIL [Suspect]
     Route: 042
     Dates: start: 20051128, end: 20051129
  3. LEUCOVORIN [Suspect]
     Route: 042
     Dates: start: 20051128, end: 20051129
  4. RADIOTHERAPY [Concomitant]
     Indication: OESOPHAGEAL CARCINOMA
     Dosage: TOTAL DOSE OF FRACTION ADMINISTERED BEFORE SAE: 50GY
     Route: 050
     Dates: start: 20051128, end: 20060102
  5. CELECTOL [Concomitant]
  6. CIBADREX [Concomitant]
  7. PHYSIOTENS [Concomitant]

REACTIONS (2)
  - DYSPHAGIA [None]
  - ODYNOPHAGIA [None]
